FAERS Safety Report 11138726 (Version 1)
Quarter: 2015Q2

REPORT INFORMATION
  Report Type: Spontaneous
  Country: US (occurrence: US)
  Receive Date: 20150527
  Receipt Date: 20150527
  Transmission Date: 20150821
  Serious: Yes (Death)
  Sender: FDA-Public Use
  Company Number: PHHY2015US060795

PATIENT
  Age: 68 Year
  Sex: Female

DRUGS (2)
  1. MEPERIDINE [Concomitant]
     Active Substance: MEPERIDINE
     Indication: CHILLS
     Route: 065
  2. DIGOXIN. [Suspect]
     Active Substance: DIGOXIN
     Indication: PRODUCT USED FOR UNKNOWN INDICATION
     Route: 065

REACTIONS (2)
  - Toxicity to various agents [Fatal]
  - Cardiac failure congestive [Fatal]
